FAERS Safety Report 5423576-4 (Version None)
Quarter: 2007Q3

REPORT INFORMATION
  Report Type: 
  Country: None (occurrence: None)
  Receive Date: 20070821
  Receipt Date: 20070821
  Transmission Date: 20080115
  Serious: Yes (Life-Threatening, Hospitalization, Disabling, Other)
  Sender: FDA-Public Use
  Company Number: None

PATIENT
  Sex: Female

DRUGS (1)
  1. ORTHO EVRA [Suspect]

REACTIONS (4)
  - INFERIOR VENA CAVAL OCCLUSION [None]
  - PAIN [None]
  - POOR PERIPHERAL CIRCULATION [None]
  - THROMBOSIS [None]
